FAERS Safety Report 5579971-6 (Version None)
Quarter: 2008Q1

REPORT INFORMATION
  Report Type: 
  Country: None (occurrence: None)
  Receive Date: 20080103
  Receipt Date: 20071227
  Transmission Date: 20080703
  Serious: Yes (Other)
  Sender: FDA-Public Use
  Company Number: AU-ALLERGAN-0714303US

PATIENT
  Sex: Male

DRUGS (1)
  1. BOTOX [Suspect]
     Indication: TENSION HEADACHE
     Dosage: UNK, SINGLE
     Dates: start: 20071201, end: 20071201

REACTIONS (1)
  - HEADACHE [None]
